FAERS Safety Report 6616359-0 (Version None)
Quarter: 2010Q1

REPORT INFORMATION
  Report Type: 
  Country: None (occurrence: None)
  Receive Date: 20100226
  Receipt Date: 20100224
  Transmission Date: 20100710
  Serious: Yes (Death, Other)
  Sender: FDA-Public Use
  Company Number: 2010000710

PATIENT
  Sex: Female

DRUGS (1)
  1. EFFENTORA (TABLET) [Suspect]
     Indication: CANCER PAIN
     Dosage: BU
     Route: 002

REACTIONS (4)
  - DYSPNOEA [None]
  - LOCALISED OEDEMA [None]
  - PANIC DISORDER [None]
  - RESPIRATORY DISTRESS [None]
